FAERS Safety Report 9799945 (Version 1)
Quarter: 2014Q1

REPORT INFORMATION
  Report Type: Spontaneous
  Country: US (occurrence: US)
  Receive Date: 20140106
  Receipt Date: 20140106
  Transmission Date: 20141002
  Serious: No
  Sender: FDA-Public Use
  Company Number: US-BAYER-2014-002206

PATIENT
  Sex: 0

DRUGS (1)
  1. ALEVE TABLET [Suspect]
     Indication: PAIN

REACTIONS (1)
  - Drug ineffective [None]
